FAERS Safety Report 9413635 (Version 1)
Quarter: 2013Q2

REPORT INFORMATION
  Report Type: Spontaneous
  Country: US (occurrence: None)
  Receive Date: 20130520
  Receipt Date: 20130520
  Transmission Date: 20140414
  Serious: No
  Sender: FDA-Public Use
  Company Number: 2013-00076

PATIENT
  Age: 51 Year
  Sex: Male

DRUGS (2)
  1. ZICAM [Suspect]
     Indication: NASAL CONGESTION
     Dosage: 1-2 SPRAYS IN EACH NOSTRIL/1DOSE
     Dates: start: 201210
  2. ZICAM COLD REMEDY NASAL GEL [Suspect]
     Indication: NASOPHARYNGITIS
     Dates: start: 201302

REACTIONS (3)
  - Anosmia [None]
  - Dysgeusia [None]
  - Ageusia [None]
